FAERS Safety Report 5963127-9 (Version None)
Quarter: 2008Q4

REPORT INFORMATION
  Report Type: 
  Country: None (occurrence: None)
  Receive Date: 20081120
  Receipt Date: 20081120
  Transmission Date: 20090506
  Serious: Yes (Other)
  Sender: FDA-Public Use
  Company Number: None

PATIENT
  Age: 45 Year
  Sex: Male
  Weight: 90.7194 kg

DRUGS (1)
  1. VYTORIN [Suspect]
     Indication: BLOOD TRIGLYCERIDES INCREASED
     Dosage: ONE TAB ONCE DAILY PO
     Route: 048
     Dates: start: 20081102, end: 20081118

REACTIONS (3)
  - CONSTIPATION [None]
  - HEADACHE [None]
  - RECTAL HAEMORRHAGE [None]
